FAERS Safety Report 5277917-1 (Version None)
Quarter: 2007Q1

REPORT INFORMATION
  Report Type: 
  Country: None (occurrence: None)
  Receive Date: 20070321
  Receipt Date: 20070312
  Transmission Date: 20070707
  Serious: Yes (Death)
  Sender: FDA-Public Use
  Company Number: 238168

PATIENT
  Age: 68 Year
  Sex: Male
  Weight: 72.9 kg

DRUGS (5)
  1. BEVACIZUMAB (BEVACIZUMAB) PWDR + SOLVENT, INFUSION SOLN, 100MG [Suspect]
     Indication: NON-SMALL CELL LUNG CANCER
     Dosage: 1260, Q3W, INTRAVENOUS
     Route: 042
     Dates: start: 20060329
  2. BEVACIZUMAB (BEVACIZUMAB) PWDR + SOLVENT, INFUSION SOLN, 100MG [Suspect]
  3. BEVACIZUMAB (BEVACIZUMAB) PWDR + SOLVENT, INFUSION SOLN, 100MG [Suspect]
  4. DOCETAXEL(DOCETAXEL) [Suspect]
     Indication: NON-SMALL CELL LUNG CANCER
     Dosage: 135 MG, Q3W, INTRAVENOUS
     Route: 042
     Dates: start: 20060308
  5. CAROBPLATIN(CARBOPLATIN) [Suspect]
     Indication: NON-SMALL CELL LUNG CANCER
     Dosage: 400 MG, Q3W, INTRAVENOUS
     Route: 042
     Dates: start: 20060308

REACTIONS (3)
  - ASTHENIA [None]
  - CONFUSIONAL STATE [None]
  - LEUKOENCEPHALOPATHY [None]
